FAERS Safety Report 5053801-3 (Version None)
Quarter: 2006Q3

REPORT INFORMATION
  Report Type: 
  Country: None (occurrence: None)
  Receive Date: 20060718
  Receipt Date: 20050509
  Transmission Date: 20061208
  Serious: Yes (Other)
  Sender: FDA-Public Use
  Company Number: US-GLAXOSMITHKLINE-A0558614A

PATIENT
  Age: 32 Year
  Sex: Male

DRUGS (6)
  1. PAXIL [Suspect]
     Indication: OBSESSIVE-COMPULSIVE DISORDER
     Route: 048
     Dates: start: 20000131
  2. ZYPREXA [Concomitant]
  3. CELEXA [Concomitant]
     Dates: end: 20000131
  4. WELLBUTRIN [Concomitant]
  5. NEURONTIN [Concomitant]
  6. KLONOPIN [Concomitant]

REACTIONS (10)
  - ASTHENIA [None]
  - DEPRESSION [None]
  - DRUG WITHDRAWAL SYNDROME [None]
  - HYPOAESTHESIA [None]
  - PARAESTHESIA [None]
  - PHYSICAL DISABILITY [None]
  - SUICIDAL IDEATION [None]
  - VISION BLURRED [None]
  - VOMITING [None]
  - WEIGHT INCREASED [None]
